FAERS Safety Report 13402599 (Version 7)
Quarter: 2019Q2

REPORT INFORMATION
  Report Type: Report from Study
  Country: US (occurrence: US)
  Receive Date: 20170404
  Receipt Date: 20190503
  Transmission Date: 20190711
  Serious: Yes (Life-Threatening, Hospitalization)
  Sender: FDA-Public Use
  Company Number: US-PFIZER INC-2017142433

PATIENT
  Age: 18 Year
  Sex: Female
  Weight: 115 kg

DRUGS (16)
  1. PEGASPARGASE [Suspect]
     Active Substance: PEGASPARGASE
     Indication: ACUTE LYMPHOCYTIC LEUKAEMIA
     Dosage: 5700 IU (2500 IU/M2), CYCLIC (DAYS 4,15,43)
     Route: 042
     Dates: start: 20170104, end: 20170104
  2. PEGASPARGASE [Suspect]
     Active Substance: PEGASPARGASE
     Dosage: 2500 IU/M2 (5500MG), DAY 4, 15, 43
     Route: 042
     Dates: start: 20170306, end: 20170306
  3. CYCLOPHOSPHAMIDE. [Suspect]
     Active Substance: CYCLOPHOSPHAMIDE
     Indication: ACUTE LYMPHOCYTIC LEUKAEMIA
     Dosage: 2200 MG (1000 MG/M2), CYCLIC (DAY 1, 29)
     Route: 042
     Dates: start: 20170210
  4. MERCAPTOPURINE. [Suspect]
     Active Substance: MERCAPTOPURINE
     Indication: ACUTE LYMPHOCYTIC LEUKAEMIA
     Dosage: 150 MG X2 DAYS, 125 X5 DAYS, DAILY 14 DAYS
     Route: 048
     Dates: start: 20170210
  5. CYTARABINE. [Suspect]
     Active Substance: CYTARABINE
     Indication: ACUTE LYMPHOCYTIC LEUKAEMIA
     Dosage: 70 MG, SINGLE
     Route: 037
     Dates: start: 20170101
  6. CYTARABINE. [Suspect]
     Active Substance: CYTARABINE
     Dosage: 40 MG, 2X/WEEK X 2
     Route: 037
     Dates: start: 20170104
  7. INCB018424 [Suspect]
     Active Substance: RUXOLITINIB
     Indication: ACUTE LYMPHOCYTIC LEUKAEMIA
     Dosage: 40 MG (20 MG/M2), CYCLIC (TWICE DAILY DAYS 1-4, 29-42)
     Route: 048
     Dates: start: 20170210
  8. CYCLOPHOSPHAMIDE. [Suspect]
     Active Substance: CYCLOPHOSPHAMIDE
     Dosage: 2240 MG, SINGLE
     Route: 042
     Dates: start: 20170320
  9. VINCRISTINE SULFATE. [Suspect]
     Active Substance: VINCRISTINE SULFATE
     Indication: ACUTE LYMPHOCYTIC LEUKAEMIA
     Dosage: 1.5 MG/M2 (2 MG), DAYS 1,8, 15, 22,43,50
     Route: 042
     Dates: start: 20170227
  10. METHOTREXATE SODIUM. [Suspect]
     Active Substance: METHOTREXATE SODIUM
     Indication: ACUTE LYMPHOCYTIC LEUKAEMIA
     Dosage: 15 MG, DAYS 8 AND 29
     Route: 037
     Dates: start: 20170109
  11. CYTARABINE. [Suspect]
     Active Substance: CYTARABINE
     Dosage: 170 MG, DAYS 29-32, 36-39
     Route: 042
     Dates: start: 20170320
  12. MERCAPTOPURINE. [Suspect]
     Active Substance: MERCAPTOPURINE
     Dosage: 150 MG X3 DAYS, 125 X 4 DAYS, DAILY 14 DAYS
     Route: 048
     Dates: start: 20170320
  13. ASPARAGINASE [Suspect]
     Active Substance: ASPARAGINASE
     Indication: ACUTE LYMPHOCYTIC LEUKAEMIA
     Dosage: 54000 UNITS, ONCE
     Route: 030
     Dates: start: 20170310
  14. ASPARAGINASE [Suspect]
     Active Substance: ASPARAGINASE
     Dosage: 56000 UNITS, EVERY OTHER DAY (5 DOSES)
     Route: 030
     Dates: start: 20170313
  15. METHOTREXATE SODIUM. [Suspect]
     Active Substance: METHOTREXATE SODIUM
     Dosage: 15 MG, WEEKLY
     Route: 037
     Dates: start: 20170210
  16. CYTARABINE. [Suspect]
     Active Substance: CYTARABINE
     Dosage: 160 MG (75 MG/M2), CYCLIC (DAYS 1-4, 8-11, 29-32 AND 26-39)
     Route: 042
     Dates: start: 20170210

REACTIONS (4)
  - Anaphylactic reaction [Recovered/Resolved]
  - Vascular access complication [Recovered/Resolved with Sequelae]
  - Febrile neutropenia [Recovered/Resolved]
  - Febrile neutropenia [Recovered/Resolved]

NARRATIVE: CASE EVENT DATE: 20170227
